FAERS Safety Report 4449742-2 (Version None)
Quarter: 2004Q3

REPORT INFORMATION
  Report Type: 
  Country: None (occurrence: None)
  Receive Date: 20040913
  Receipt Date: 20040831
  Transmission Date: 20050211
  Serious: Yes (Death)
  Sender: FDA-Public Use
  Company Number: 163-20785-04090162

PATIENT
  Age: 48 Year
  Sex: Male

DRUGS (3)
  1. THALOMID [Suspect]
     Indication: AMYLOIDOSIS
     Dosage: ORAL
     Route: 048
  2. MELPHALAN (MELPHALAN) [Suspect]
     Indication: AMYLOIDOSIS
     Dosage: 140MG/M2
  3. DEXAMETHASONE [Suspect]
     Indication: AMYLOIDOSIS

REACTIONS (6)
  - APNOEA [None]
  - BLOOD PH DECREASED [None]
  - BRADYCARDIA [None]
  - ELECTROMECHANICAL DISSOCIATION [None]
  - HYPOTENSION [None]
  - SUDDEN CARDIAC DEATH [None]
